FAERS Safety Report 10047704 (Version 2)
Quarter: 2014Q2

REPORT INFORMATION
  Report Type: Spontaneous
  Country: US (occurrence: US)
  Receive Date: 20140331
  Receipt Date: 20140402
  Transmission Date: 20141212
  Serious: Yes (Hospitalization, Other)
  Sender: FDA-Public Use
  Company Number: US-ASTRAZENECA-2014SE21053

PATIENT
  Age: 68 Year
  Sex: Female
  Weight: 59 kg

DRUGS (11)
  1. SYMBICORT [Suspect]
     Indication: CHRONIC OBSTRUCTIVE PULMONARY DISEASE
     Dosage: 160/4.5 2 PUFFS BID
     Route: 055
     Dates: start: 2010, end: 2012
  2. SYMBICORT [Suspect]
     Indication: CHRONIC OBSTRUCTIVE PULMONARY DISEASE
     Dosage: 160/4.5 2 PUFFS BID
     Route: 055
     Dates: start: 201310
  3. LISINOPRIL [Suspect]
     Route: 048
     Dates: end: 2012
  4. NORVASC [Concomitant]
     Indication: BLOOD PRESSURE ABNORMAL
     Route: 048
  5. SPIRIVA [Concomitant]
     Dosage: 1 SPRAY
     Route: 055
  6. VENTOLIN [Concomitant]
     Indication: RESPIRATORY THERAPY
     Route: 055
  7. SINGULAIR [Concomitant]
     Indication: OBSTRUCTIVE AIRWAYS DISORDER
     Route: 048
  8. PREDNISONE [Concomitant]
     Indication: INFLAMMATION
     Route: 048
     Dates: start: 20140321
  9. XANAX [Concomitant]
     Indication: ANXIETY
     Route: 048
     Dates: start: 1999
  10. XANAX [Concomitant]
     Indication: ANXIETY
     Dosage: 2 TO 3 PILLS AS NEEDED
  11. GABAPENTIN [Concomitant]
     Indication: BACK PAIN
     Route: 048
     Dates: start: 201207

REACTIONS (10)
  - Condition aggravated [Unknown]
  - Post procedural complication [Unknown]
  - Procedural complication [Unknown]
  - Blood pressure decreased [Unknown]
  - Feeling abnormal [Unknown]
  - Amnesia [Unknown]
  - Back pain [Unknown]
  - Therapy cessation [Unknown]
  - Incorrect product storage [Unknown]
  - Intentional product misuse [Unknown]
